FAERS Safety Report 6715528-9 (Version None)
Quarter: 2010Q2

REPORT INFORMATION
  Report Type: 
  Country: None (occurrence: None)
  Receive Date: 20100507
  Receipt Date: 20100504
  Transmission Date: 20101027
  Serious: Yes (Other)
  Sender: FDA-Public Use
  Company Number: US-SANOFI-AVENTIS-2010SA024828

PATIENT

DRUGS (1)
  1. MULTAQ [Suspect]
     Route: 048

REACTIONS (3)
  - CARDIAC FAILURE [None]
  - HYPONATRAEMIA [None]
  - PULMONARY OEDEMA [None]
